FAERS Safety Report 13718800 (Version 5)
Quarter: 2017Q4

REPORT INFORMATION
  Report Type: Report from Study
  Country: BR (occurrence: BR)
  Receive Date: 20170705
  Receipt Date: 20171026
  Transmission Date: 20180320
  Serious: Yes (Other)
  Sender: FDA-Public Use
  Company Number: PHHY2017BR097568

PATIENT
  Age: 7 Year
  Sex: Male
  Weight: 17 kg

DRUGS (1)
  1. ILARIS [Suspect]
     Active Substance: CANAKINUMAB
     Indication: DEFICIENCY OF THE INTERLEUKIN-1 RECEPTOR ANTAGONIST
     Dosage: 150 MG, EVERY 4 WEEKS
     Route: 058
     Dates: start: 201610

REACTIONS (3)
  - Abdominal pain upper [Recovered/Resolved]
  - Osteomyelitis [Unknown]
  - Product use in unapproved indication [Unknown]

NARRATIVE: CASE EVENT DATE: 20161116
